FAERS Safety Report 8452808-3 (Version None)
Quarter: 2012Q2

REPORT INFORMATION
  Report Type: 
  Country: None (occurrence: None)
  Receive Date: 20120620
  Receipt Date: 20120426
  Transmission Date: 20120825
  Serious: No
  Sender: FDA-Public Use
  Company Number: US-VERTEX PHARMACEUTICALS INC.-AE-2012-006124

PATIENT
  Age: 55 Year
  Sex: Female
  Weight: 149.82 kg

DRUGS (3)
  1. INCIVEK [Suspect]
     Indication: HEPATITIS C
     Route: 048
     Dates: start: 20120421
  2. PEGASYS [Concomitant]
     Indication: HEPATITIS C
  3. RIBASPHERE [Concomitant]
     Indication: HEPATITIS C
     Dates: start: 20120421

REACTIONS (2)
  - DECREASED APPETITE [None]
  - PRURITUS [None]
